FAERS Safety Report 22234349 (Version 1)
Quarter: 2023Q2

REPORT INFORMATION
  Report Type: Spontaneous
  Country: US (occurrence: None)
  Receive Date: 20230420
  Receipt Date: 20230420
  Transmission Date: 20230721
  Serious: No
  Sender: FDA-Public Use
  Company Number: US-ROCHE-3172778

PATIENT
  Sex: Female
  Weight: 72.640 kg

DRUGS (10)
  1. ESBRIET [Suspect]
     Active Substance: PIRFENIDONE
     Indication: Idiopathic pulmonary fibrosis
     Dosage: THREE 267MG PILLS, 3 TIMES PER DAY WITH MEALS
     Route: 048
     Dates: start: 20220827
  2. ESBRIET [Suspect]
     Active Substance: PIRFENIDONE
     Dosage: ONE PILL 3 TIMES PER DAY WITH MEALS
     Route: 048
     Dates: start: 20220813
  3. ESBRIET [Suspect]
     Active Substance: PIRFENIDONE
     Dosage: THREE 267MG PILLS, 3 TIMES PER DAY WITH MEALS
     Route: 048
     Dates: start: 20220820
  4. ESBRIET [Suspect]
     Active Substance: PIRFENIDONE
     Dosage: TAKE 1 CAPSULE BY MOUTH 3 TIMES DAILY 7 DAYS, THEN 2 CAPSULES BY MOUTH 3 TIMES DAILY FOR 7 DAYS, THE
     Route: 048
     Dates: start: 202208
  5. ESBRIET [Suspect]
     Active Substance: PIRFENIDONE
     Route: 048
     Dates: start: 20220812
  6. ESBRIET [Suspect]
     Active Substance: PIRFENIDONE
     Indication: Idiopathic pulmonary fibrosis
     Dosage: 8 PILLS A DAY
     Route: 048
     Dates: start: 202207
  7. AZELASTINE HYDROCHLORIDE [Concomitant]
     Active Substance: AZELASTINE HYDROCHLORIDE
     Indication: Hypersensitivity
     Dosage: ONE SPRAY PER NOSTRIL
     Route: 045
     Dates: start: 2012
  8. ALLEGRA [Concomitant]
     Active Substance: FEXOFENADINE HYDROCHLORIDE
     Indication: Hypersensitivity
     Route: 048
     Dates: start: 2012
  9. XLEAR [Concomitant]
     Indication: Hypersensitivity
     Route: 045
     Dates: start: 2012
  10. HYALURONIC ACID [Concomitant]
     Active Substance: HYALURONIC ACID
     Indication: Arthritis

REACTIONS (13)
  - Nausea [Recovering/Resolving]
  - Fatigue [Not Recovered/Not Resolved]
  - Dizziness [Unknown]
  - Asthenia [Unknown]
  - Off label use [Unknown]
  - Feeling abnormal [Unknown]
  - Depressed mood [Unknown]
  - Ill-defined disorder [Unknown]
  - Bowel movement irregularity [Unknown]
  - Arthralgia [Unknown]
  - Diarrhoea [Unknown]
  - Vomiting [Unknown]
  - Abdominal pain upper [Unknown]

NARRATIVE: CASE EVENT DATE: 20220701
